FAERS Safety Report 7268260-X (Version None)
Quarter: 2011Q1

REPORT INFORMATION
  Report Type: 
  Country: None (occurrence: None)
  Receive Date: 20110201
  Receipt Date: 20110124
  Transmission Date: 20110831
  Serious: Yes (Hospitalization)
  Sender: FDA-Public Use
  Company Number: PE-JNJFOC-20110106642

PATIENT
  Age: 56 Year
  Sex: Female
  Weight: 76 kg

DRUGS (5)
  1. GOLIMUMAB [Suspect]
     Indication: RHEUMATOID ARTHRITIS
     Route: 058
  2. FOLIC ACID [Concomitant]
     Route: 048
  3. PREDNISONE [Concomitant]
     Route: 048
  4. ENALAPRIL MALEATE [Concomitant]
     Indication: HYPERTENSION
     Route: 048
  5. METHOTREXATE [Concomitant]
     Route: 048

REACTIONS (1)
  - URINARY TRACT INFECTION [None]
